FAERS Safety Report 24416146 (Version 1)
Quarter: 2024Q4

REPORT INFORMATION
  Report Type: Spontaneous
  Country: FR (occurrence: FR)
  Receive Date: 20241009
  Receipt Date: 20241009
  Transmission Date: 20250115
  Serious: Yes (Hospitalization, Other)
  Sender: CIPLA
  Company Number: FR-AFSSAPS-TO2024001648

PATIENT

DRUGS (2)
  1. EMTRICITABINE\TENOFOVIR [Suspect]
     Active Substance: EMTRICITABINE\TENOFOVIR
     Indication: Primary syphilis
     Dosage: 1 DOSAGE FORM, QD (200 MG/245 MG)
     Route: 048
     Dates: start: 20240820
  2. PENICILLIN G BENZATHINE [Suspect]
     Active Substance: PENICILLIN G BENZATHINE
     Indication: Primary syphilis
     Dosage: 1 DOSAGE FORM (1 TOTAL) (STRENGTH: 2.4 MUI)
     Route: 030
     Dates: start: 20240701, end: 20240701

REACTIONS (1)
  - Agranulocytosis [Recovering/Resolving]

NARRATIVE: CASE EVENT DATE: 20240819
